FAERS Safety Report 8904626 (Version 1)
Quarter: 2012Q4

REPORT INFORMATION
  Report Type: 
  Country: IN (occurrence: IN)
  Receive Date: 20121113
  Receipt Date: 20121113
  Transmission Date: 20130627
  Serious: Yes (Death, Life-Threatening, Hospitalization)
  Sender: FDA-Public Use
  Company Number: PHHO2012IN015929

PATIENT
  Age: 37 Year
  Sex: Male

DRUGS (8)
  1. PREDNISOLONE [Suspect]
     Dosage: 5 mg, UNK
     Dates: start: 20111126
  2. MYCOPHENOLATE SODIUM [Suspect]
     Dosage: UNK
     Dates: start: 20110614
  3. BELATACEPT [Concomitant]
     Indication: RENAL TRANSPLANT
     Dosage: 3150 mg, UNK
     Route: 042
     Dates: start: 20080125
  4. BELATACEPT [Concomitant]
     Dosage: 210 mg, UNK
     Route: 042
  5. FEBUXOSTAT [Concomitant]
     Dates: start: 20120223, end: 20120926
  6. POTASSIUM CITRATE [Concomitant]
     Dates: start: 20110905, end: 20120926
  7. SODIUM BICARBONATE [Concomitant]
     Dates: start: 20120124
  8. URIMAX [Concomitant]
     Dates: start: 20110613, end: 20120926

REACTIONS (1)
  - Brain abscess [Fatal]
